FAERS Safety Report 6816232-9 (Version None)
Quarter: 2010Q3

REPORT INFORMATION
  Report Type: 
  Country: None (occurrence: None)
  Receive Date: 20100702
  Receipt Date: 20100702
  Transmission Date: 20110219
  Serious: Yes (Hospitalization)
  Sender: FDA-Public Use
  Company Number: None

PATIENT
  Sex: Male
  Weight: 76.8 kg

DRUGS (6)
  1. CYCLOPHOSPHAMIDE [Suspect]
     Dosage: 3940 MG
  2. CYTARABINE [Suspect]
     Dosage: 1321 MG
  3. MERCAPTOPURINE [Suspect]
     Dosage: 1650 MG
  4. METHOTREXATE [Suspect]
     Dosage: 60 MG
  5. PEG-L ASPARAGINASE (K-H) [Suspect]
     Dosage: 4800 IU
  6. VINCRISTINE SULFATE [Suspect]
     Dosage: 4 MG

REACTIONS (11)
  - ABDOMINAL PAIN [None]
  - CHEST PAIN [None]
  - CHILLS [None]
  - DECREASED APPETITE [None]
  - DIARRHOEA [None]
  - FAECES DISCOLOURED [None]
  - FEBRILE NEUTROPENIA [None]
  - HEPATIC STEATOSIS [None]
  - HYPERHIDROSIS [None]
  - NAUSEA [None]
  - TACHYCARDIA [None]
